FAERS Safety Report 15228273 (Version 1)
Quarter: 2018Q3

REPORT INFORMATION
  Report Type: Spontaneous
  Country: IN (occurrence: IN)
  Receive Date: 20180801
  Receipt Date: 20180801
  Transmission Date: 20181010
  Serious: Yes (Hospitalization)
  Sender: FDA-Public Use
  Company Number: IN-MYLANLABS-2018M1056802

PATIENT
  Age: 19 Year
  Sex: Male
  Weight: 55 kg

DRUGS (4)
  1. PYRAZINAMIDE. [Suspect]
     Active Substance: PYRAZINAMIDE
     Indication: INFECTIOUS PLEURAL EFFUSION
     Dosage: 1500 MG, QD
     Route: 065
  2. RIFAMPICIN [Suspect]
     Active Substance: RIFAMPIN
     Indication: INFECTIOUS PLEURAL EFFUSION
     Dosage: 600 MG, QD
     Route: 065
  3. ISONIAZID. [Suspect]
     Active Substance: ISONIAZID
     Indication: INFECTIOUS PLEURAL EFFUSION
     Dosage: 300 MG, QD
     Route: 065
  4. ETHAMBUTOL [Suspect]
     Active Substance: ETHAMBUTOL HYDROCHLORIDE
     Indication: INFECTIOUS PLEURAL EFFUSION
     Dosage: 1000 MG, QD
     Route: 065

REACTIONS (1)
  - Hepatic encephalopathy [Recovered/Resolved]
